FAERS Safety Report 16909459 (Version 5)
Quarter: 2020Q2

REPORT INFORMATION
  Report Type: Spontaneous
  Country: US (occurrence: US)
  Receive Date: 20191011
  Receipt Date: 20200522
  Transmission Date: 20200713
  Serious: Yes (Other)
  Sender: FDA-Public Use
  Company Number: US-ASTRAZENECA-2019SF39783

PATIENT
  Age: 27839 Day
  Sex: Female
  Weight: 62.1 kg

DRUGS (2)
  1. BYETTA [Suspect]
     Active Substance: EXENATIDE
     Route: 065
     Dates: start: 2007
  2. BYDUREON BCISE [Suspect]
     Active Substance: EXENATIDE
     Indication: DIABETES MELLITUS
     Route: 058
     Dates: start: 201907

REACTIONS (11)
  - Monoplegia [Unknown]
  - Cardiac disorder [Unknown]
  - Injection site haemorrhage [Unknown]
  - Incorrect dose administered [Unknown]
  - Needle issue [Unknown]
  - Blood glucose abnormal [Unknown]
  - Cerebrovascular accident [Unknown]
  - Injection site injury [Unknown]
  - Fatigue [Unknown]
  - Aneurysm [Unknown]
  - Eye disorder [Unknown]

NARRATIVE: CASE EVENT DATE: 20190119
